FAERS Safety Report 5775237-X (Version None)
Quarter: 2008Q2

REPORT INFORMATION
  Report Type: 
  Country: None (occurrence: None)
  Receive Date: 20080612
  Receipt Date: 20080610
  Transmission Date: 20081010
  Serious: Yes (Hospitalization)
  Sender: FDA-Public Use
  Company Number: GRT-2007-13264

PATIENT
  Age: 51 Year
  Sex: Male
  Weight: 104 kg

DRUGS (15)
  1. LIDOCAINE [Suspect]
     Indication: NEURALGIA
     Dosage: 2 PATCHES A DAY
     Dates: start: 20070813, end: 20070813
  2. PREGABALIN [Suspect]
     Indication: NEURALGIA
     Dosage: 150 ~ 600MG
     Dates: start: 20070716, end: 20070816
  3. HUMALOG MIX [Concomitant]
  4. ALLOPURINOL [Concomitant]
  5. TRITACE [Concomitant]
  6. CITALOPRAM HYDROBROMIDE [Concomitant]
  7. XANAX [Concomitant]
  8. PRAXITEN [Concomitant]
  9. ZOLPIDEM [Concomitant]
  10. VITAMIN D [Concomitant]
  11. CALCIUM SANDOZ [Concomitant]
  12. TRAMAL [Concomitant]
  13. LACIPIL [Concomitant]
  14. FUROSEMIDE [Concomitant]
  15. ACTONEL [Concomitant]

REACTIONS (3)
  - AGGRESSION [None]
  - DEPRESSION [None]
  - SUICIDAL IDEATION [None]
